FAERS Safety Report 6538941-1 (Version None)
Quarter: 2010Q1

REPORT INFORMATION
  Report Type: 
  Country: None (occurrence: None)
  Receive Date: 20100115
  Receipt Date: 20100111
  Transmission Date: 20100710
  Serious: Yes (Death)
  Sender: FDA-Public Use
  Company Number: US-ROCHE-678915

PATIENT
  Sex: Female

DRUGS (1)
  1. XELODA [Suspect]
     Indication: COLORECTAL CANCER
     Dosage: TAKEN 2 TABLETS AM AND 3 TABLETS PM, 7 DAYS ON/OFF.
     Route: 048

REACTIONS (1)
  - DEATH [None]
